FAERS Safety Report 20166926 (Version 1)
Quarter: 2021Q4

REPORT INFORMATION
  Report Type: Spontaneous
  Country: CN (occurrence: CN)
  Receive Date: 20211209
  Receipt Date: 20211209
  Transmission Date: 20220303
  Serious: Yes (Other)
  Sender: FDA-Public Use
  Company Number: CN-PFIZER INC-202101699096

PATIENT
  Age: 8 Year
  Sex: Male
  Weight: 24 kg

DRUGS (1)
  1. METHOTREXATE SODIUM [Suspect]
     Active Substance: METHOTREXATE SODIUM
     Indication: Chemotherapy
     Dosage: 4.7 G, 1X/DAY
     Route: 041
     Dates: start: 20211117, end: 20211117

REACTIONS (2)
  - Acute kidney injury [Not Recovered/Not Resolved]
  - Drug level increased [Not Recovered/Not Resolved]

NARRATIVE: CASE EVENT DATE: 20211119
